FAERS Safety Report 8934081 (Version 1)
Quarter: 2012Q4

REPORT INFORMATION
  Report Type: 
  Country: US (occurrence: US)
  Receive Date: 20121129
  Receipt Date: 20121129
  Transmission Date: 20130627
  Serious: No
  Sender: FDA-Public Use
  Company Number: US-GLAXOSMITHKLINE-A0950699A

PATIENT
  Age: 50 Year
  Sex: Female
  Weight: 75 kg

DRUGS (5)
  1. WELLBUTRIN SR [Suspect]
     Indication: DEPRESSION
     Dosage: 150MG Twice per day
  2. CHANTIX [Suspect]
     Indication: SMOKING CESSATION THERAPY
     Dates: start: 201107, end: 20110919
  3. ABILIFY [Concomitant]
  4. COMBIGAN [Concomitant]
  5. LUMIGAN [Concomitant]

REACTIONS (3)
  - Abnormal dreams [Not Recovered/Not Resolved]
  - Paranoia [Unknown]
  - Dysgeusia [Unknown]
